FAERS Safety Report 18614788 (Version 4)
Quarter: 2021Q2

REPORT INFORMATION
  Report Type: Spontaneous
  Country: JP (occurrence: JP)
  Receive Date: 20201214
  Receipt Date: 20210409
  Transmission Date: 20210717
  Serious: Yes (Life-Threatening, Hospitalization, Other)
  Sender: FDA-Public Use
  Company Number: JP-009507513-2012JPN001041J

PATIENT
  Age: 64 Year
  Sex: Female
  Weight: 55 kg

DRUGS (23)
  1. LORAZEPAM. [Concomitant]
     Active Substance: LORAZEPAM
     Dosage: 0.5 MILLIGRAM, QD,BEFORE BEDTIME
     Route: 048
     Dates: end: 20200831
  2. TRAMAL LONG [Concomitant]
     Active Substance: TRAMADOL
     Dosage: 25 MILLIGRAM, TID
     Route: 048
     Dates: end: 20200831
  3. CALONAL [Concomitant]
     Active Substance: ACETAMINOPHEN
     Dosage: 1000 MILLIGRAM, QID, AFTER BREAKFAST, LUNCH AND DINNER AND BEFORE BEDTIME
     Route: 048
     Dates: end: 20200831
  4. KEYTRUDA [Suspect]
     Active Substance: PEMBROLIZUMAB
     Indication: BREAST CANCER
     Dosage: 200 MILLIGRAM EVERY TIME
     Route: 041
     Dates: start: 20200808, end: 20200808
  5. ADALAT CC [Concomitant]
     Active Substance: NIFEDIPINE
     Dosage: 20 MILLIGRAM, QD,AFTER BREAKFAST
     Route: 048
     Dates: end: 20200831
  6. CANDESARTAN. [Concomitant]
     Active Substance: CANDESARTAN
     Dosage: 4 MILLIGRAM, QD,AFTER DINNER
     Route: 048
     Dates: end: 20200831
  7. ROZEREM [Concomitant]
     Active Substance: RAMELTEON
     Dosage: 8 MILLIGRAM, QD,BEFORE BEDTIME
     Route: 048
     Dates: end: 20200831
  8. HALOPERIDOL. [Concomitant]
     Active Substance: HALOPERIDOL
     Dosage: 1.5 MILLIGRAM, QD, BEFORE BEDTIME
     Route: 048
     Dates: end: 20200831
  9. OXYCONTIN TR [Concomitant]
     Active Substance: OXYCODONE HYDROCHLORIDE
     Dosage: 5 MILLIGRAM, BID,AFTER BREAKFAST AND DINNER
     Route: 048
     Dates: end: 20200831
  10. CALONAL [Concomitant]
     Active Substance: ACETAMINOPHEN
     Dosage: 1000 MILLIGRAM, PRN : FOR 14 DOSES, AT THE TIME OF PAIN
     Route: 048
     Dates: end: 20200831
  11. NOVAMIN [Concomitant]
     Dosage: 5 MILLIGRAM, TID,BEFORE BREAKFAST, LUNCH, AND DINNER
     Route: 048
     Dates: end: 20200831
  12. SYMPROIC [Concomitant]
     Active Substance: NALDEMEDINE
     Dosage: 0.2 MILLIGRAM, QD,AFTER DINNER
     Route: 048
     Dates: end: 20200831
  13. REVOLADE [Concomitant]
     Active Substance: ELTROMBOPAG OLAMINE
     Dosage: 25 MILLIGRAM, QD,BEFORE BEDTIME
     Route: 048
     Dates: end: 20200831
  14. LAFUTIDINE [Concomitant]
     Active Substance: LAFUTIDINE
     Dosage: 10 MILLIGRAM, QD,AFTER DINNER
     Route: 048
     Dates: end: 20200831
  15. TRAZODONE HYDROCHLORIDE. [Concomitant]
     Active Substance: TRAZODONE HYDROCHLORIDE
     Dosage: 25 MILLIGRAM, PRN
     Route: 048
     Dates: end: 20200831
  16. AUGMENTIN [Concomitant]
     Active Substance: AMOXICILLIN\CLAVULANATE POTASSIUM
     Dosage: 1 DOSAGE FORM, TID, AFTER BREAKFAST, LUNCH, AND DINNER
     Route: 048
     Dates: end: 20200831
  17. TARLIGE [Concomitant]
     Active Substance: MIROGABALIN BESYLATE
     Dosage: 15 MILLIGRAM, BID,AFTER BREAKFAST AND DINNER
     Route: 048
     Dates: end: 20200831
  18. URSODEOXYCHOLIC ACID [Concomitant]
     Active Substance: URSODIOL
     Dosage: 100 MILLIGRAM, TID,AFTER BREAKFAST, LUNCH, AND DINNER
     Route: 048
     Dates: end: 20200831
  19. MAGMITT [Concomitant]
     Active Substance: MAGNESIUM OXIDE
     Dosage: 330 MILLIGRAM, TID,AFTER BREAKFAST, LUNCH, AND DINNER
     Route: 048
     Dates: end: 20200831
  20. FOLIAMIN [Concomitant]
     Active Substance: FOLIC ACID
     Dosage: 1 DOSAGE FORM, QD,AFTER BREAKFAST
     Route: 048
     Dates: end: 20200831
  21. DENOTAS [Concomitant]
     Active Substance: CALCIUM CARBONATE\CHOLECALCIFEROL\MAGNESIUM CARBONATE
     Dosage: 2 DOSAGE FORM, QD,AFTER BREAKFAST
     Route: 048
     Dates: end: 20200831
  22. METHYCOBAL [Concomitant]
     Active Substance: METHYLCOBALAMIN
     Dosage: 500 MICROGRAM, TID,AFTER BREAKFAST, LUNCH, AND DINNER
     Route: 048
     Dates: end: 20200831
  23. AMOXICILLIN. [Concomitant]
     Active Substance: AMOXICILLIN
     Dosage: 250 MILLIGRAM, TID,AFTER BREAKFAST, LUNCH, AND DINNER
     Route: 048
     Dates: end: 20200831

REACTIONS (2)
  - Off label use [Unknown]
  - Myasthenia gravis [Not Recovered/Not Resolved]

NARRATIVE: CASE EVENT DATE: 20200808
